FAERS Safety Report 6048699-0 (Version None)
Quarter: 2009Q1

REPORT INFORMATION
  Report Type: 
  Country: None (occurrence: None)
  Receive Date: 20090123
  Receipt Date: 20090113
  Transmission Date: 20090719
  Serious: Yes (Death, Hospitalization, Other)
  Sender: FDA-Public Use
  Company Number: US-ROCHE-602798

PATIENT
  Sex: Female

DRUGS (4)
  1. CAPECITABINE [Suspect]
     Indication: BREAST CANCER
     Dosage: DOSE: 500 MG 3 TABLETS EVERY 12 HOURS AND 150 MG 2 TABLETS EVERY 12 HOURS
     Route: 048
     Dates: start: 20081112
  2. LYRICA [Concomitant]
     Route: 048
     Dates: start: 20081112
  3. XANAX [Concomitant]
     Indication: NERVOUSNESS
     Route: 048
     Dates: start: 20071114
  4. AMBIEN [Concomitant]
     Indication: SOMNOLENCE
     Dosage: RECEIVED AT NIGHT
     Route: 048
     Dates: start: 20081016

REACTIONS (5)
  - BREAST CANCER METASTATIC [None]
  - DIARRHOEA [None]
  - DRUG INEFFECTIVE [None]
  - NAUSEA [None]
  - VOMITING [None]
